FAERS Safety Report 23289308 (Version 14)
Quarter: 2024Q4

REPORT INFORMATION
  Report Type: Report from Study
  Country: US (occurrence: US)
  Receive Date: 20231212
  Receipt Date: 20241016
  Transmission Date: 20250114
  Serious: Yes (Other)
  Sender: NOVARTIS
  Company Number: US-002147023-NVSC2023US259419

PATIENT
  Age: 41 Year
  Sex: Female

DRUGS (4)
  1. KESIMPTA [Suspect]
     Active Substance: OFATUMUMAB
     Indication: Multiple sclerosis
     Dosage: 20 MG (1 DOSE A WEEK FOR THE 1ST 3 WEEKS, THEN SKIP A WEEK, THEN 1 DOSE PER MONTH)
     Route: 058
     Dates: start: 20231125
  2. KESIMPTA [Suspect]
     Active Substance: OFATUMUMAB
     Indication: Clinically isolated syndrome
     Dosage: 20 MG, QW-NO CHANGE
     Route: 058
     Dates: start: 20231202
  3. KESIMPTA [Suspect]
     Active Substance: OFATUMUMAB
     Indication: Relapsing-remitting multiple sclerosis
  4. KESIMPTA [Suspect]
     Active Substance: OFATUMUMAB
     Indication: Secondary progressive multiple sclerosis

REACTIONS (17)
  - Dystonia [Recovering/Resolving]
  - Nervousness [Recovering/Resolving]
  - Tremor [Recovering/Resolving]
  - Sciatica [Recovering/Resolving]
  - Fatigue [Unknown]
  - Pyrexia [Recovering/Resolving]
  - Myalgia [Recovering/Resolving]
  - Illness [Unknown]
  - Injection site pain [Not Recovered/Not Resolved]
  - Injection site bruising [Not Recovered/Not Resolved]
  - Asthenia [Recovering/Resolving]
  - Feeding disorder [Not Recovered/Not Resolved]
  - Back pain [Recovered/Resolved]
  - Anger [Recovering/Resolving]
  - Frustration tolerance decreased [Recovering/Resolving]
  - Memory impairment [Unknown]
  - Oral pain [Unknown]

NARRATIVE: CASE EVENT DATE: 20231125
